FAERS Safety Report 9458017 (Version 1)
Quarter: 2013Q3

REPORT INFORMATION
  Report Type: Spontaneous
  Country: US (occurrence: US)
  Receive Date: 20130814
  Receipt Date: 20130814
  Transmission Date: 20140515
  Serious: No
  Sender: FDA-Public Use
  Company Number: US-BAYER-2013-096987

PATIENT
  Age: 26 Year
  Sex: Female

DRUGS (1)
  1. GADAVIST [Suspect]
     Dosage: 8 ML, ONCE

REACTIONS (2)
  - Urticaria [None]
  - Pruritus [None]
